APPROVED DRUG PRODUCT: OXYTETRACYCLINE HYDROCHLORIDE
Active Ingredient: OXYTETRACYCLINE HYDROCHLORIDE
Strength: EQ 250MG BASE
Dosage Form/Route: CAPSULE;ORAL
Application: A060634 | Product #001
Applicant: PUREPAC PHARMACEUTICAL CO
Approved: Approved Prior to Jan 1, 1982 | RLD: No | RS: No | Type: DISCN